FAERS Safety Report 9714931 (Version 1)
Quarter: 2013Q4

REPORT INFORMATION
  Report Type: Spontaneous
  Country: IR (occurrence: None)
  Receive Date: 20131125
  Receipt Date: 20131125
  Transmission Date: 20140711
  Serious: Yes (Hospitalization)
  Sender: FDA-Public Use
  Company Number: 2013P1021150

PATIENT
  Sex: 0

DRUGS (1)
  1. PHENOBARBITAL [Suspect]
     Indication: EPILEPSY

REACTIONS (7)
  - Rash macular [None]
  - Pyrexia [None]
  - Leukocytosis [None]
  - Eosinophilia [None]
  - Liver function test [None]
  - Liver function test [None]
  - Drug reaction with eosinophilia and systemic symptoms [None]
